FAERS Safety Report 6129257-6 (Version None)
Quarter: 2009Q1

REPORT INFORMATION
  Report Type: 
  Country: None (occurrence: None)
  Receive Date: 20090324
  Receipt Date: 20090312
  Transmission Date: 20090719
  Serious: Yes (Other)
  Sender: FDA-Public Use
  Company Number: US-ROCHE-621474

PATIENT
  Sex: Female

DRUGS (3)
  1. ISOTRETINOIN [Suspect]
     Indication: DRUG USE FOR UNKNOWN INDICATION
     Dosage: PATIENT DISPENSED ACCUTANE 40MG CAPSULES ON 26 APRIL 2008.
     Route: 065
  2. CLARAVIS [Suspect]
     Indication: DRUG USE FOR UNKNOWN INDICATION
     Dosage: DISPENSED CLARAVIS 20MG CAP ON 22JUNE08; 40MG CAP ON 04DEC08.
     Route: 065
  3. AMNESTEEM [Suspect]
     Indication: DRUG USE FOR UNKNOWN INDICATION
     Dosage: PATIENT DISPENSED AMNESTEEM 20 MG CAPSULES ON 22 MARCH 2008.
     Route: 065

REACTIONS (2)
  - ILL-DEFINED DISORDER [None]
  - SURGERY [None]
